FAERS Safety Report 9959070 (Version 1)
Quarter: 2014Q1

REPORT INFORMATION
  Report Type: Report from Study
  Country: US (occurrence: US)
  Receive Date: 20140305
  Receipt Date: 20140305
  Transmission Date: 20141002
  Serious: No
  Sender: FDA-Public Use
  Company Number: US-ABBVIE-13P-163-1100641-00

PATIENT
  Sex: Female
  Weight: 69.01 kg

DRUGS (12)
  1. HUMIRA [Suspect]
     Indication: RHEUMATOID ARTHRITIS
     Dates: start: 2008, end: 2010
  2. SIMPONI [Suspect]
     Indication: RHEUMATOID ARTHRITIS
     Dates: start: 2011, end: 2013
  3. ISTALOL [Concomitant]
     Indication: GLAUCOMA
  4. DURZOLAMIDE HCL EYE DROPS [Concomitant]
     Indication: GLAUCOMA
  5. NIFEDIPINE [Concomitant]
     Indication: HYPERTENSION
  6. EVISTA [Concomitant]
     Indication: HORMONE REPLACEMENT THERAPY
  7. VITAMIN D [Concomitant]
     Indication: PRODUCT USED FOR UNKNOWN INDICATION
  8. METHOTREXATE [Concomitant]
     Indication: RHEUMATOID ARTHRITIS
  9. BENAZEPRIL [Concomitant]
     Indication: HYPERTENSION
  10. FOLIC ACID [Concomitant]
     Indication: PRODUCT USED FOR UNKNOWN INDICATION
  11. OSTEO BI FLEX [Concomitant]
     Indication: PRODUCT USED FOR UNKNOWN INDICATION
  12. MULTIVITAMIN [Concomitant]
     Indication: PRODUCT USED FOR UNKNOWN INDICATION

REACTIONS (5)
  - Joint swelling [Recovered/Resolved]
  - Drug ineffective [Not Recovered/Not Resolved]
  - Local swelling [Not Recovered/Not Resolved]
  - Joint swelling [Not Recovered/Not Resolved]
  - Arthralgia [Not Recovered/Not Resolved]
